FAERS Safety Report 14651673 (Version 1)
Quarter: 2018Q1

REPORT INFORMATION
  Report Type: Spontaneous
  Country: JP (occurrence: JP)
  Receive Date: 20180317
  Receipt Date: 20180317
  Transmission Date: 20180509
  Serious: Yes (Hospitalization)
  Sender: FDA-Public Use
  Company Number: JP-ROCHE-2089505

PATIENT
  Age: 90 Year
  Sex: Female

DRUGS (1)
  1. XELODA [Suspect]
     Active Substance: CAPECITABINE
     Indication: BREAST CANCER
     Dosage: [YASUKUSURI] FOR ONE WEEK AND ONE ADMINISTERING WEEK
     Route: 048

REACTIONS (4)
  - Drug dose omission [Unknown]
  - Fracture [Unknown]
  - Fall [Unknown]
  - Off label use [Unknown]
